FAERS Safety Report 8561055-6 (Version None)
Quarter: 2012Q3

REPORT INFORMATION
  Report Type: 
  Country: None (occurrence: None)
  Receive Date: 20120802
  Receipt Date: 20111207
  Transmission Date: 20120928
  Serious: No
  Sender: FDA-Public Use
  Company Number: US-BRISTOL-MYERS SQUIBB COMPANY-16273252

PATIENT
  Age: 51 Year
  Sex: Female

DRUGS (3)
  1. REYATAZ [Suspect]
     Dates: start: 20111101
  2. TRUVADA [Suspect]
  3. NORVIR [Suspect]

REACTIONS (2)
  - HEADACHE [None]
  - ABDOMINAL PAIN UPPER [None]
